FAERS Safety Report 9673424 (Version 2)
Quarter: 2014Q1

REPORT INFORMATION
  Report Type: Spontaneous
  Country: US (occurrence: US)
  Receive Date: 20131106
  Receipt Date: 20140203
  Transmission Date: 20141002
  Serious: No
  Sender: FDA-Public Use
  Company Number: US-AMGEN-USASP2013075305

PATIENT
  Age: 81 Year
  Sex: Female
  Weight: 61.68 kg

DRUGS (7)
  1. ENBREL [Suspect]
     Indication: RHEUMATOID ARTHRITIS
     Dosage: 50 MG, QWK
     Route: 058
     Dates: start: 20131209
  2. AMLODIPINE [Concomitant]
     Dosage: 5 MG, UNK
     Route: 048
  3. CLONAZEPAM [Concomitant]
     Dosage: .5, UNK
     Route: 048
  4. FOLIC ACID [Concomitant]
     Dosage: 1 MG, UNK
     Route: 048
  5. LEUCOVORIN                         /00566701/ [Concomitant]
     Dosage: 10 MG, UNK
     Route: 048
  6. METHOTREXATE [Concomitant]
     Dosage: UNK
     Route: 058
  7. OXYCODONE [Concomitant]
     Dosage: 5 MG, UNK
     Route: 048

REACTIONS (1)
  - Drug ineffective [Unknown]
